FAERS Safety Report 4929540-3 (Version None)
Quarter: 2006Q1

REPORT INFORMATION
  Report Type: 
  Country: None (occurrence: None)
  Receive Date: 20060223
  Receipt Date: 20060210
  Transmission Date: 20060701
  Serious: Yes (Other)
  Sender: FDA-Public Use
  Company Number: 2006021452

PATIENT
  Age: 48 Year
  Sex: Male
  Weight: 111.1313 kg

DRUGS (2)
  1. VIAGRA [Suspect]
     Indication: ERECTILE DYSFUNCTION
     Dosage: 100  MG (100 MG, AS NECESSARY)
     Dates: start: 19990101
  2. ALL OTHER THERAPEUTIC PRODUCT [Concomitant]

REACTIONS (2)
  - CORONARY ARTERY STENOSIS [None]
  - MYOCARDIAL INFARCTION [None]
